FAERS Safety Report 25019069 (Version 1)
Quarter: 2025Q1

REPORT INFORMATION
  Report Type: Spontaneous
  Country: CN (occurrence: CN)
  Receive Date: 20250227
  Receipt Date: 20250227
  Transmission Date: 20250408
  Serious: Yes (Other)
  Sender: COSETTE PHARMACEUTICALS INC
  Company Number: CN-SA-2025SA048297

PATIENT
  Age: 49 Year
  Sex: Female
  Weight: 47.5 kg

DRUGS (10)
  1. AMBIEN [Suspect]
     Active Substance: ZOLPIDEM TARTRATE
     Indication: Sleep disorder
     Route: 048
     Dates: start: 20250120, end: 20250123
  2. SALIVAE MILTIORRHIZAE LIGUSPYRAGINE HYDROCHLORIDE AND GLUCOSE [Concomitant]
     Indication: Coagulopathy
     Route: 041
     Dates: start: 20250120, end: 20250124
  3. SALIVAE MILTIORRHIZAE LIGUSPYRAGINE HYDROCHLORIDE AND GLUCOSE [Concomitant]
  4. LIGUSTRAZINE [Concomitant]
     Active Substance: LIGUSTRAZINE
     Indication: Coagulopathy
     Route: 041
  5. BACILLUS LICHENIFORMIS GRANULES, LIVE [Concomitant]
     Indication: Infection
     Route: 048
     Dates: start: 20250120, end: 20250124
  6. BACILLUS LICHENIFORMIS GRANULES, LIVE [Concomitant]
  7. OMEPRAZOLE SODIUM [Concomitant]
     Active Substance: OMEPRAZOLE SODIUM
     Indication: Gastritis
     Route: 041
     Dates: start: 20250120, end: 20250127
  8. OMEPRAZOLE SODIUM [Concomitant]
     Active Substance: OMEPRAZOLE SODIUM
  9. BETAHISTINE MESILATE [Concomitant]
     Active Substance: BETAHISTINE MESILATE
     Indication: Dizziness
     Route: 048
     Dates: start: 20250120, end: 20250124
  10. BETAHISTINE MESILATE [Concomitant]
     Active Substance: BETAHISTINE MESILATE

REACTIONS (7)
  - Unresponsive to stimuli [Recovering/Resolving]
  - Discomfort [Recovering/Resolving]
  - Tangentiality [Recovering/Resolving]
  - Dysaesthesia [Recovering/Resolving]
  - Somnolence [Recovering/Resolving]
  - Confusional state [Recovering/Resolving]
  - Asthenia [Recovering/Resolving]

NARRATIVE: CASE EVENT DATE: 20250123
